FAERS Safety Report 17861115 (Version 2)
Quarter: 2020Q3

REPORT INFORMATION
  Report Type: Spontaneous
  Country: JP (occurrence: JP)
  Receive Date: 20200604
  Receipt Date: 20200812
  Transmission Date: 20201103
  Serious: Yes (Hospitalization, Other)
  Sender: FDA-Public Use
  Company Number: JP-ELI_LILLY_AND_COMPANY-JP202004011348

PATIENT
  Age: 71 Year
  Sex: Male
  Weight: 64 kg

DRUGS (5)
  1. MAGMITT [Concomitant]
     Active Substance: MAGNESIUM OXIDE
     Indication: PRODUCT USED FOR UNKNOWN INDICATION
     Dosage: UNK, UNKNOWN
     Route: 065
     Dates: start: 20200416, end: 20200511
  2. PORTRAZZA [Suspect]
     Active Substance: NECITUMUMAB
     Indication: LUNG NEOPLASM MALIGNANT
     Dosage: 800 MG, UNKNOWN
     Route: 042
     Dates: start: 20200414, end: 20200513
  3. CISPLATIN. [Suspect]
     Active Substance: CISPLATIN
     Indication: SQUAMOUS CELL CARCINOMA OF LUNG
     Dosage: 100 MG, UNKNOWN
     Route: 065
     Dates: start: 20200414, end: 20200513
  4. GEMCITABINE HYDROCHLORIDE. [Suspect]
     Active Substance: GEMCITABINE HYDROCHLORIDE
     Indication: SQUAMOUS CELL CARCINOMA
     Dosage: UNK, UNKNOWN
     Route: 065
  5. OLANZAPINE. [Suspect]
     Active Substance: OLANZAPINE
     Indication: PRODUCT USED FOR UNKNOWN INDICATION
     Dosage: UNK, UNKNOWN
     Route: 065

REACTIONS (8)
  - Paronychia [Recovered/Resolved]
  - Hypomagnesaemia [Recovering/Resolving]
  - Neutropenia [Unknown]
  - Pruritus [Unknown]
  - Fatigue [Unknown]
  - Anaemia [Unknown]
  - Dry skin [Unknown]
  - Malaise [Unknown]

NARRATIVE: CASE EVENT DATE: 20200421
